FAERS Safety Report 16075035 (Version 1)
Quarter: 2019Q1

REPORT INFORMATION
  Report Type: Spontaneous
  Country: GB (occurrence: GB)
  Receive Date: 20190315
  Receipt Date: 20190315
  Transmission Date: 20190418
  Serious: Yes (Hospitalization, Disabling)
  Sender: FDA-Public Use
  Company Number: GB-MICRO LABS LIMITED-ML2019-00543

PATIENT
  Age: 81 Year
  Sex: Female

DRUGS (2)
  1. AMOXICILLIN/CLAVULANIC ACID [Suspect]
     Active Substance: AMOXICILLIN\CLAVULANIC ACID
     Indication: URINARY TRACT INFECTION
  2. PIVMECILLINAM [Suspect]
     Active Substance: AMDINOCILLIN PIVOXIL
     Indication: URINARY TRACT INFECTION

REACTIONS (4)
  - Documented hypersensitivity to administered product [Unknown]
  - Drug reaction with eosinophilia and systemic symptoms [Unknown]
  - Delirium [Unknown]
  - Rash generalised [Unknown]
